FAERS Safety Report 9976078 (Version 1)
Quarter: 2014Q1

REPORT INFORMATION
  Report Type: Spontaneous
  Country: US (occurrence: US)
  Receive Date: 20140306
  Receipt Date: 20140306
  Transmission Date: 20141002
  Serious: Yes (Other)
  Sender: FDA-Public Use
  Company Number: US-BAXTER-2014BAX007126

PATIENT
  Age: 58 Year
  Sex: Male

DRUGS (4)
  1. VANCOMYCIN INJECTION, USP [Suspect]
     Indication: OSTEOMYELITIS
     Route: 042
  2. VANCOMYCIN INJECTION, USP [Suspect]
     Indication: ABSCESS
  3. CEFTRIAXONE INJECTION, USP (IN DEXTROSE) [Suspect]
     Indication: CORYNEBACTERIUM INFECTION
     Route: 042
  4. CEFTRIAXONE INJECTION, USP (IN DEXTROSE) [Suspect]
     Indication: PROPIONIBACTERIUM INFECTION

REACTIONS (1)
  - Osteomyelitis [Unknown]
